FAERS Safety Report 6907022-7 (Version None)
Quarter: 2010Q3

REPORT INFORMATION
  Report Type: 
  Country: None (occurrence: None)
  Receive Date: 20100804
  Receipt Date: 20071101
  Transmission Date: 20110219
  Serious: No
  Sender: FDA-Public Use
  Company Number: US-PFIZER INC-2007089082

PATIENT
  Sex: Male
  Weight: 102.3 kg

DRUGS (2)
  1. NARDIL [Suspect]
     Indication: DEPRESSION
     Dates: start: 19870101
  2. NARDIL [Suspect]
     Indication: ANXIETY

REACTIONS (2)
  - DRUG INEFFECTIVE [None]
  - VITAMIN B12 DECREASED [None]
